FAERS Safety Report 4534386-4 (Version None)
Quarter: 2004Q4

REPORT INFORMATION
  Report Type: 
  Country: None (occurrence: None)
  Receive Date: 20041214
  Receipt Date: 20041019
  Transmission Date: 20050328
  Serious: Yes (Hospitalization, Other)
  Sender: FDA-Public Use
  Company Number: 2004240239US

PATIENT
  Age: 50 Year
  Sex: Female
  Weight: 90.2 kg

DRUGS (11)
  1. BEXTRA [Suspect]
     Indication: DIABETIC NEUROPATHY
     Dosage: ORAL
     Route: 048
     Dates: start: 20041001, end: 20041012
  2. MAXZIDE [Concomitant]
  3. PREVACID [Concomitant]
  4. REGLAN [Concomitant]
  5. PREMARIN [Concomitant]
  6. CLARINEX [Concomitant]
  7. ACCOLATE [Concomitant]
  8. EFFEXOR XR [Concomitant]
  9. AMBIEN [Concomitant]
  10. NEURONTIN [Concomitant]
  11. GLUCOPHAGE [Concomitant]

REACTIONS (5)
  - BLOOD CREATININE INCREASED [None]
  - DRUG HYPERSENSITIVITY [None]
  - PULMONARY OEDEMA [None]
  - RASH PAPULAR [None]
  - WHITE BLOOD CELL COUNT INCREASED [None]
